FAERS Safety Report 5862430-0 (Version None)
Quarter: 2008Q3

REPORT INFORMATION
  Report Type: 
  Country: None (occurrence: None)
  Receive Date: 20080827
  Receipt Date: 20080827
  Transmission Date: 20090109
  Serious: Yes (Life-Threatening, Hospitalization, Other)
  Sender: FDA-Public Use
  Company Number: None

PATIENT
  Sex: Male
  Weight: 128.7 kg

DRUGS (1)
  1. ZITHROMAX [Suspect]
     Indication: SINUS HEADACHE
     Dates: start: 20071110, end: 20071125

REACTIONS (3)
  - HEPATIC FAILURE [None]
  - HEPATITIS [None]
  - HEPATITIS ACUTE [None]
